FAERS Safety Report 21131370 (Version 1)
Quarter: 2022Q3

REPORT INFORMATION
  Report Type: Report from Study
  Country: CA (occurrence: CA)
  Receive Date: 20220726
  Receipt Date: 20220726
  Transmission Date: 20221027
  Serious: Yes (Other)
  Sender: FDA-Public Use
  Company Number: None

PATIENT
  Age: 61 Year
  Sex: Female

DRUGS (8)
  1. METHOTREXATE [Suspect]
     Active Substance: METHOTREXATE
     Indication: Rheumatoid arthritis
  2. RITUXIMAB [Suspect]
     Active Substance: RITUXIMAB
     Indication: Rheumatoid arthritis
     Route: 042
  3. BISOPROLOL [Concomitant]
     Active Substance: BISOPROLOL
     Indication: Arrhythmia
  4. CELEBREX [Concomitant]
     Active Substance: CELECOXIB
  5. GABAPENTIN [Concomitant]
     Active Substance: GABAPENTIN
  6. VITAMIN D [Concomitant]
     Active Substance: VITAMIN D NOS
  7. MINERALS NOS [Concomitant]
     Active Substance: MINERALS
  8. VITAMINS NOS [Concomitant]
     Active Substance: VITAMINS

REACTIONS (3)
  - Anxiety [Unknown]
  - Arrhythmia [Unknown]
  - Dyspnoea [Unknown]
